FAERS Safety Report 6136063-5 (Version None)
Quarter: 2009Q1

REPORT INFORMATION
  Report Type: 
  Country: None (occurrence: None)
  Receive Date: 20090330
  Receipt Date: 20090327
  Transmission Date: 20090719
  Serious: Yes (Death)
  Sender: FDA-Public Use
  Company Number: GB-JNJFOC-20090301044

PATIENT
  Age: 59 Year
  Sex: Male

DRUGS (3)
  1. RISPERDAL CONSTA [Suspect]
     Route: 030
     Dates: end: 20090109
  2. RISPERDAL CONSTA [Suspect]
     Route: 030
     Dates: end: 20090109
  3. RISPERDAL CONSTA [Suspect]
     Indication: DRUG USE FOR UNKNOWN INDICATION
     Route: 030
     Dates: end: 20090109

REACTIONS (1)
  - CARDIAC FAILURE [None]
